FAERS Safety Report 4866506-6 (Version None)
Quarter: 2005Q4

REPORT INFORMATION
  Report Type: 
  Country: None (occurrence: None)
  Receive Date: 20051227
  Receipt Date: 20051005
  Transmission Date: 20060501
  Serious: Yes (Death, Other)
  Sender: FDA-Public Use
  Company Number: US-MERCK-0510USA05390

PATIENT
  Age: 28 Year
  Sex: Male
  Weight: 145 kg

DRUGS (2)
  1. VIOXX [Suspect]
     Indication: SURGERY
     Route: 048
     Dates: start: 20010501, end: 20010601
  2. VICODIN [Concomitant]
     Route: 065

REACTIONS (4)
  - CARDIOVASCULAR DISORDER [None]
  - DEEP VEIN THROMBOSIS [None]
  - OSTEOCHONDROSIS [None]
  - PULMONARY EMBOLISM [None]
